FAERS Safety Report 7167153-6 (Version None)
Quarter: 2010Q4

REPORT INFORMATION
  Report Type: 
  Country: None (occurrence: None)
  Receive Date: 20101216
  Receipt Date: 20101210
  Transmission Date: 20110411
  Serious: Yes (Disabling)
  Sender: FDA-Public Use
  Company Number: GXBR2010US02089

PATIENT
  Sex: Female

DRUGS (1)
  1. CIPROFLOXACIN HCL [Suspect]

REACTIONS (11)
  - ANXIETY [None]
  - ARTHROPATHY [None]
  - DEFORMITY [None]
  - EMOTIONAL DISTRESS [None]
  - FOOT DEFORMITY [None]
  - PAIN [None]
  - PARALYSIS [None]
  - ROTATOR CUFF SYNDROME [None]
  - SURGERY [None]
  - WHEELCHAIR USER [None]
  - WOUND DEHISCENCE [None]
